FAERS Safety Report 9716096 (Version 2)
Quarter: 2014Q1

REPORT INFORMATION
  Report Type: Spontaneous
  Country: US (occurrence: US)
  Receive Date: 20131127
  Receipt Date: 20140121
  Transmission Date: 20141002
  Serious: Yes (Disabling)
  Sender: FDA-Public Use
  Company Number: US-009507513-1311USA009310

PATIENT
  Age: 19 Year
  Sex: Male

DRUGS (1)
  1. METHYLPREDNISOLONE SODIUM SUCCINATE [Suspect]
     Indication: HYPERSENSITIVITY
     Dosage: UNK

REACTIONS (1)
  - Hallucination, tactile [Recovered/Resolved]
